FAERS Safety Report 10175707 (Version 1)
Quarter: 2014Q2

REPORT INFORMATION
  Report Type: Report from Study
  Country: CA (occurrence: CA)
  Receive Date: 20140516
  Receipt Date: 20140516
  Transmission Date: 20141212
  Serious: Yes (Other)
  Sender: FDA-Public Use
  Company Number: CA-JNJFOC-20140505485

PATIENT
  Age: 44 Year
  Sex: Male
  Weight: 117 kg

DRUGS (3)
  1. REMICADE [Suspect]
     Indication: PSORIATIC ARTHROPATHY
     Route: 042
     Dates: start: 20140509
  2. REMICADE [Suspect]
     Indication: PSORIATIC ARTHROPATHY
     Route: 042
  3. REMICADE [Suspect]
     Indication: PSORIATIC ARTHROPATHY
     Route: 042
     Dates: start: 20130419

REACTIONS (9)
  - Chest discomfort [Recovered/Resolved]
  - Abdominal symptom [Recovered/Resolved]
  - Pallor [Recovered/Resolved]
  - Infusion related reaction [Recovered/Resolved]
  - Hyperhidrosis [Recovered/Resolved]
  - Skin warm [Recovered/Resolved]
  - Dizziness [Recovered/Resolved]
  - Muscle twitching [Recovered/Resolved]
  - Nasopharyngitis [Recovered/Resolved]
